FAERS Safety Report 17484411 (Version 1)
Quarter: 2020Q1

REPORT INFORMATION
  Report Type: Spontaneous
  Country: JP (occurrence: JP)
  Receive Date: 20200302
  Receipt Date: 20200302
  Transmission Date: 20200409
  Serious: Yes (Other)
  Sender: FDA-Public Use
  Company Number: JP-ROCHE-2557184

PATIENT

DRUGS (1)
  1. CYMEVENE [GANCICLOVIR] [Suspect]
     Active Substance: GANCICLOVIR
     Indication: RETINITIS
     Route: 031

REACTIONS (5)
  - Renal impairment [Unknown]
  - Blood count abnormal [Unknown]
  - Disease progression [Unknown]
  - Off label use [Unknown]
  - Product use issue [Unknown]
